FAERS Safety Report 23658413 (Version 1)
Quarter: 2024Q1

REPORT INFORMATION
  Report Type: Spontaneous
  Country: US (occurrence: US)
  Receive Date: 20240321
  Receipt Date: 20240321
  Transmission Date: 20240410
  Serious: Yes (Other)
  Sender: FDA-Public Use
  Company Number: US-UPSHER-SMITH LABORATORIES, LLC-2023USL00318

PATIENT
  Age: 29 Year
  Sex: Female

DRUGS (3)
  1. MYORISAN [Suspect]
     Active Substance: ISOTRETINOIN
     Indication: Keratosis follicular
     Dosage: 30 MG, 2X/DAY
     Dates: start: 20210304, end: 20230115
  2. IRBESARTAN [Concomitant]
     Active Substance: IRBESARTAN
     Dosage: UNK
     Dates: start: 202106, end: 202301
  3. LARIN [Concomitant]
     Dosage: UNK
     Dates: start: 202206, end: 202301

REACTIONS (4)
  - Exposure during pregnancy [Unknown]
  - Sinusitis [Unknown]
  - Off label use [Unknown]
  - Potentiating drug interaction [Unknown]

NARRATIVE: CASE EVENT DATE: 20221219
